FAERS Safety Report 7374368-0 (Version None)
Quarter: 2011Q1

REPORT INFORMATION
  Report Type: 
  Country: None (occurrence: None)
  Receive Date: 20110325
  Receipt Date: 20110322
  Transmission Date: 20110831
  Serious: Yes (Other)
  Sender: FDA-Public Use
  Company Number: JP-PFIZER INC-2011027528

PATIENT
  Age: 43 Year
  Sex: Female

DRUGS (21)
  1. ALLEGRA [Concomitant]
     Indication: URTICARIA
     Dosage: 60 MG, 2X/DAY
     Route: 048
     Dates: start: 20110129, end: 20110213
  2. MEILAX [Concomitant]
  3. BETAMETHASONE [Concomitant]
     Dosage: 0.25 MG, 1X/DAY
     Route: 048
     Dates: start: 20110116, end: 20110121
  4. ACINON [Concomitant]
     Indication: URTICARIA
     Dosage: 75 MG, 2X/DAY
     Route: 048
     Dates: start: 20110129, end: 20110213
  5. ONON [Concomitant]
  6. CLARITIN [Concomitant]
     Dosage: 10 MG, UNK
  7. BETAMETHASONE [Concomitant]
     Indication: URTICARIA
     Dosage: 0.25 MG, 2X/DAY
     Route: 048
     Dates: start: 20110113, end: 20110115
  8. BETAMETHASONE [Concomitant]
     Dosage: 0.25 MG, 1X/DAY
     Route: 048
     Dates: start: 20110205, end: 20110213
  9. NEO-MINOPHAGEN C [Concomitant]
     Dosage: 20 ML, 1X/DAY
     Route: 042
     Dates: start: 20110205, end: 20110205
  10. NEO-MINOPHAGEN C [Concomitant]
     Indication: URTICARIA
     Dosage: 20 ML, 1X/DAY
     Route: 042
     Dates: start: 20110121, end: 20110121
  11. NEO-MINOPHAGEN C [Concomitant]
     Dosage: 20 ML, 1X/DAY
     Route: 042
     Dates: start: 20110129, end: 20110129
  12. XYZAL [Concomitant]
     Indication: URTICARIA
     Dosage: 5 MG, 1X/DAY
     Route: 048
     Dates: start: 20110113, end: 20110120
  13. MYSLEE [Concomitant]
  14. THEO-DUR [Concomitant]
  15. ATARAX [Concomitant]
     Indication: URTICARIA
     Dosage: 10 MG, 1X/DAY
     Route: 048
     Dates: start: 20110129, end: 20110204
  16. ATARAX [Suspect]
     Indication: URTICARIA
     Dosage: 25 MG, 1X/DAY
     Route: 030
     Dates: start: 20110121, end: 20110121
  17. BETAMETHASONE [Concomitant]
     Dosage: 0.25 MG, 2X/DAY
     Route: 048
     Dates: start: 20110121, end: 20110205
  18. ZYRTEC [Concomitant]
     Indication: URTICARIA
     Dosage: 10 MG, 1X/DAY
     Route: 048
     Dates: start: 20110121, end: 20110128
  19. ATARAX [Suspect]
     Dosage: 25 MG, 1X/DAY
     Route: 030
     Dates: start: 20110129, end: 20110129
  20. ATARAX [Suspect]
     Dosage: 25 MG, 1X/DAY
     Route: 030
     Dates: start: 20110205, end: 20110205
  21. ADOAIR [Concomitant]

REACTIONS (2)
  - HYPOAESTHESIA [None]
  - MUSCLE DISORDER [None]
